FAERS Safety Report 6166057-5 (Version None)
Quarter: 2009Q2

REPORT INFORMATION
  Report Type: 
  Country: None (occurrence: None)
  Receive Date: 20090424
  Receipt Date: 20090416
  Transmission Date: 20091009
  Serious: Yes (Other)
  Sender: FDA-Public Use
  Company Number: BR-JNJFOC-20090404530

PATIENT
  Age: 78 Year
  Sex: Female
  Weight: 49 kg

DRUGS (5)
  1. DURAGESIC-100 [Suspect]
     Indication: CANCER PAIN
     Route: 062
  2. EPREX [Suspect]
     Indication: BLOOD COUNT ABNORMAL
     Dosage: 1 APPLICATION A WEEK
     Route: 050
  3. LISINOPRIL [Concomitant]
     Indication: HYPERTENSION
     Dosage: SINCE MANY YEARS AGO
     Route: 065
  4. METHADONE [Concomitant]
     Indication: PAIN
     Route: 065
  5. MAREVAN [Concomitant]
     Indication: ANTICOAGULANT THERAPY
     Dosage: THE DOSE IS ALWAYS CHANGING SINCE 6 MONTHS AGO
     Route: 065

REACTIONS (1)
  - HYPERGLYCAEMIA [None]
